FAERS Safety Report 16859590 (Version 5)
Quarter: 2021Q2

REPORT INFORMATION
  Report Type: Spontaneous
  Country: CA (occurrence: CA)
  Receive Date: 20190927
  Receipt Date: 20210417
  Transmission Date: 20210716
  Serious: Yes (Other)
  Sender: FDA-Public Use
  Company Number: CA-CELLTRION INC.-2018CA020542

PATIENT

DRUGS (31)
  1. INFLECTRA [Suspect]
     Active Substance: INFLIXIMAB-DYYB
     Dosage: 5 MG/KG (454 MG), EVERY 0, 2, 6 THEN EVERY 8 WEEKS)
     Route: 042
     Dates: start: 20180709
  2. INFLECTRA [Suspect]
     Active Substance: INFLIXIMAB-DYYB
     Dosage: 700 MG,  (EVERY 4 WEEKS)
     Route: 042
     Dates: start: 20190718
  3. DUTASTERIDE. [Concomitant]
     Active Substance: DUTASTERIDE
     Dosage: UNK, 1X/DAY
     Route: 065
  4. INFLECTRA [Suspect]
     Active Substance: INFLIXIMAB-DYYB
     Dosage: 5 MG/KG (454 MG), EVERY 0, 2, 6 THEN EVERY 8 WEEKS)
     Route: 042
     Dates: start: 20180709
  5. INFLECTRA [Suspect]
     Active Substance: INFLIXIMAB-DYYB
     Dosage: 500 MG, EVERY 4 WEEKS
     Route: 042
     Dates: start: 20180913
  6. INFLECTRA [Suspect]
     Active Substance: INFLIXIMAB-DYYB
     Dosage: 500 MG,  (EVERY 4 WEEKS)
     Route: 042
     Dates: start: 20190131
  7. INFLECTRA [Suspect]
     Active Substance: INFLIXIMAB-DYYB
     Dosage: 700 MG,  (EVERY 4 WEEKS)
     Route: 042
     Dates: start: 20190304
  8. INFLECTRA [Suspect]
     Active Substance: INFLIXIMAB-DYYB
     Dosage: 700 MG,  (EVERY 4 WEEKS)
     Route: 042
     Dates: start: 20190523
  9. INFLECTRA [Suspect]
     Active Substance: INFLIXIMAB-DYYB
     Dosage: 700 MG,  (EVERY 4 WEEKS)
     Route: 042
     Dates: start: 20210309
  10. INFLECTRA [Suspect]
     Active Substance: INFLIXIMAB-DYYB
     Dosage: 700 MG,  (EVERY 4 WEEKS)
     Route: 042
     Dates: start: 20210406
  11. INFLECTRA [Suspect]
     Active Substance: INFLIXIMAB-DYYB
     Dosage: 700 MG,  (EVERY 4 WEEKS)
     Route: 042
     Dates: start: 20200731
  12. INFLECTRA [Suspect]
     Active Substance: INFLIXIMAB-DYYB
     Dosage: 700 MG,  (EVERY 4 WEEKS)
     Route: 042
     Dates: start: 20210211
  13. INFLECTRA [Suspect]
     Active Substance: INFLIXIMAB-DYYB
     Dosage: 5 MG/KG (454 MG), EVERY 0, 2, 6 THEN EVERY 8 WEEKS)
     Route: 042
     Dates: start: 20180611
  14. INFLECTRA [Suspect]
     Active Substance: INFLIXIMAB-DYYB
     Dosage: 700 MG,  (EVERY 4 WEEKS)
     Route: 042
     Dates: start: 20200630
  15. INFLECTRA [Suspect]
     Active Substance: INFLIXIMAB-DYYB
     Dosage: 700 MG,  (EVERY 4 WEEKS)
     Route: 042
     Dates: start: 20200731
  16. INFLECTRA [Suspect]
     Active Substance: INFLIXIMAB-DYYB
     Dosage: 700 MG,  (EVERY 4 WEEKS)
     Route: 042
     Dates: start: 20210309
  17. INFLECTRA [Suspect]
     Active Substance: INFLIXIMAB-DYYB
     Dosage: 500 MG, EVERY 4 WEEKS
     Route: 042
     Dates: start: 20190102
  18. INFLECTRA [Suspect]
     Active Substance: INFLIXIMAB-DYYB
     Dosage: 700 MG,  (EVERY 4 WEEKS)
     Route: 042
     Dates: start: 20210309
  19. HYDROCORTISONE. [Concomitant]
     Active Substance: HYDROCORTISONE
     Indication: PREMEDICATION
     Dosage: 100MG
     Route: 048
     Dates: start: 20190523, end: 20190523
  20. HYDROCORTISONE. [Concomitant]
     Active Substance: HYDROCORTISONE
     Dosage: 100 MG
     Route: 042
     Dates: start: 20200731, end: 20200731
  21. INFLECTRA [Suspect]
     Active Substance: INFLIXIMAB-DYYB
     Indication: COLITIS ULCERATIVE
     Dosage: 5 MG/KG (454 MG), EVERY 0, 2, 6 THEN EVERY 8 WEEKS)
     Route: 042
     Dates: start: 20180529
  22. INFLECTRA [Suspect]
     Active Substance: INFLIXIMAB-DYYB
     Dosage: 500 MG, EVERY 4 WEEKS
     Route: 042
     Dates: start: 20181204
  23. INFLECTRA [Suspect]
     Active Substance: INFLIXIMAB-DYYB
     Dosage: 700 MG,  (EVERY 4 WEEKS)
     Route: 042
     Dates: start: 20190819
  24. INFLECTRA [Suspect]
     Active Substance: INFLIXIMAB-DYYB
     Dosage: 700 MG,  (EVERY 4 WEEKS)
     Route: 042
     Dates: start: 20190917
  25. INFLECTRA [Suspect]
     Active Substance: INFLIXIMAB-DYYB
     Dosage: 700 MG,  (EVERY 4 WEEKS)
     Route: 042
     Dates: start: 20200825
  26. ACETAMINOPHEN. [Concomitant]
     Active Substance: ACETAMINOPHEN
     Dosage: 650 MG
     Route: 048
     Dates: start: 20200731, end: 20200731
  27. INFLECTRA [Suspect]
     Active Substance: INFLIXIMAB-DYYB
     Dosage: 700 MG,  (EVERY 4 WEEKS)
     Route: 042
     Dates: start: 20210211
  28. INFLECTRA [Suspect]
     Active Substance: INFLIXIMAB-DYYB
     Dosage: 700 MG,  (EVERY 4 WEEKS)
     Route: 042
     Dates: start: 20210211
  29. ACETAMINOPHEN. [Concomitant]
     Active Substance: ACETAMINOPHEN
     Indication: PREMEDICATION
     Dosage: 1000 MG
     Dates: start: 20190523, end: 20190523
  30. AERIUS (DESLORATADINE) [Concomitant]
     Active Substance: DESLORATADINE
     Indication: PREMEDICATION
     Dosage: 5 MG
     Route: 048
     Dates: start: 20190523, end: 20190523
  31. INFLECTRA [Suspect]
     Active Substance: INFLIXIMAB-DYYB
     Dosage: 500 MG, EVERY 4 WEEKS
     Route: 042
     Dates: start: 20180807

REACTIONS (14)
  - Pain in jaw [Not Recovered/Not Resolved]
  - Condition aggravated [Recovered/Resolved]
  - Tooth infection [Unknown]
  - Tooth disorder [Unknown]
  - Abscess jaw [Not Recovered/Not Resolved]
  - Visual impairment [Not Recovered/Not Resolved]
  - Drug level below therapeutic [Unknown]
  - Fatigue [Not Recovered/Not Resolved]
  - Drug specific antibody present [Unknown]
  - Body temperature fluctuation [Unknown]
  - Off label use [Unknown]
  - Intentional product use issue [Unknown]
  - Blood pressure fluctuation [Unknown]
  - Benign prostatic hyperplasia [Unknown]

NARRATIVE: CASE EVENT DATE: 20180529
